FAERS Safety Report 7568288-6 (Version None)
Quarter: 2011Q2

REPORT INFORMATION
  Report Type: 
  Country: None (occurrence: None)
  Receive Date: 20110617
  Receipt Date: 20110607
  Transmission Date: 20111010
  Serious: Yes (Hospitalization)
  Sender: FDA-Public Use
  Company Number: 2011SP001927

PATIENT
  Sex: Female

DRUGS (1)
  1. LATUDA [Suspect]
     Dosage: 40 MG; ORAL
     Route: 048
     Dates: start: 20110101

REACTIONS (1)
  - PSYCHOTIC DISORDER [None]
